FAERS Safety Report 10154283 (Version 1)
Quarter: 2014Q2

REPORT INFORMATION
  Report Type: Spontaneous
  Country: IT (occurrence: IT)
  Receive Date: 20140506
  Receipt Date: 20140506
  Transmission Date: 20141212
  Serious: Yes (Other)
  Sender: FDA-Public Use
  Company Number: IT-MYLANLABS-2014S1009608

PATIENT
  Age: 78 Year
  Sex: Male

DRUGS (9)
  1. REPAGLINIDE [Suspect]
     Indication: DIABETES MELLITUS
     Dosage: .5 MG DAILY
     Route: 048
     Dates: start: 20140110, end: 20140115
  2. ISOCOLAN [Suspect]
     Indication: COLONOSCOPY
     Dosage: 16 DF DAILY
     Route: 048
     Dates: start: 20140113, end: 20140113
  3. LASIX [Suspect]
     Indication: CARDIAC FAILURE
     Dosage: 250 MG DAILY
     Route: 048
     Dates: start: 20140103, end: 20140113
  4. ZAROXOLYN [Suspect]
     Indication: CARDIAC FAILURE
     Dosage: 5 MG DAILY
     Route: 048
     Dates: start: 20130111, end: 20130113
  5. CANRENONE [Suspect]
     Indication: PRODUCT USED FOR UNKNOWN INDICATION
     Dosage: 50 MG DAILY
     Route: 048
     Dates: start: 20140103, end: 20140115
  6. IPRAXA [Concomitant]
     Indication: PRODUCT USED FOR UNKNOWN INDICATION
  7. TOP-NITRO [Concomitant]
     Indication: PRODUCT USED FOR UNKNOWN INDICATION
  8. EPREX [Concomitant]
     Indication: PRODUCT USED FOR UNKNOWN INDICATION
  9. LANSOX [Concomitant]
     Indication: PRODUCT USED FOR UNKNOWN INDICATION

REACTIONS (1)
  - Renal failure chronic [Unknown]
